FAERS Safety Report 24870683 (Version 1)
Quarter: 2025Q1

REPORT INFORMATION
  Report Type: Spontaneous
  Country: IN (occurrence: IN)
  Receive Date: 20250121
  Receipt Date: 20250121
  Transmission Date: 20250409
  Serious: Yes (Life-Threatening, Hospitalization, Other)
  Sender: RANBAXY
  Company Number: IN-SUN PHARMACEUTICAL INDUSTRIES LTD.-2025R1-489289

PATIENT
  Age: 4 Year
  Sex: Male

DRUGS (3)
  1. FOSPHENYTOIN [Suspect]
     Active Substance: FOSPHENYTOIN
     Indication: Status dystonicus
     Route: 065
  2. CEFTRIAXONE [Suspect]
     Active Substance: CEFTRIAXONE
     Indication: Respiratory failure
     Route: 065
  3. ACETAMINOPHEN [Suspect]
     Active Substance: ACETAMINOPHEN
     Indication: Body temperature increased
     Route: 065

REACTIONS (1)
  - Condition aggravated [Unknown]
